FAERS Safety Report 5726805-2 (Version None)
Quarter: 2008Q2

REPORT INFORMATION
  Report Type: 
  Country: None (occurrence: None)
  Receive Date: 20080502
  Receipt Date: 20080421
  Transmission Date: 20081010
  Serious: Yes (Other)
  Sender: FDA-Public Use
  Company Number: US-PFIZER INC-2008028830

PATIENT
  Sex: Female

DRUGS (4)
  1. CHANTIX [Suspect]
     Dates: start: 20080222, end: 20080301
  2. LEVOXYL [Suspect]
     Indication: BASEDOW'S DISEASE
  3. ALPRAZOLAM [Concomitant]
  4. OXYCODONE HCL [Concomitant]

REACTIONS (11)
  - AGGRESSION [None]
  - ALOPECIA [None]
  - CARDIAC DISORDER [None]
  - CONSTIPATION [None]
  - DEPRESSION [None]
  - FLATULENCE [None]
  - GALLOP RHYTHM PRESENT [None]
  - GASTROINTESTINAL DISORDER [None]
  - HYPERTHYROIDISM [None]
  - MALAISE [None]
  - NAUSEA [None]
